FAERS Safety Report 4492514-3 (Version None)
Quarter: 2004Q4

REPORT INFORMATION
  Report Type: 
  Country: None (occurrence: None)
  Receive Date: 20041102
  Receipt Date: 20041102
  Transmission Date: 20050328
  Serious: Yes (Life-Threatening)
  Sender: FDA-Public Use
  Company Number: None

PATIENT
  Age: 66 Year
  Sex: Male

DRUGS (7)
  1. VANCOMYCIN [Suspect]
     Indication: ANTIBACTERIAL PROPHYLAXIS
     Dosage: 500 MG ONCE IV
     Route: 042
     Dates: start: 20040719, end: 20040719
  2. AMIODARONE HCL [Concomitant]
  3. CIALIS [Concomitant]
  4. LISINOPRIL [Concomitant]
  5. CLOPIDOGREL BISULFATE [Concomitant]
  6. ASPIRIN [Concomitant]
  7. LUPRON [Concomitant]

REACTIONS (3)
  - BRADYCARDIA [None]
  - HYPOTENSION [None]
  - RASH [None]
